FAERS Safety Report 9046387 (Version 1)
Quarter: 2013Q1

REPORT INFORMATION
  Report Type: Spontaneous
  Country: US (occurrence: None)
  Receive Date: 20130128
  Receipt Date: 20130128
  Transmission Date: 20140127
  Serious: Yes (Other)
  Sender: FDA-Public Use
  Company Number: None

PATIENT
  Age: 74 Year
  Sex: Female
  Weight: 47.63 kg

DRUGS (1)
  1. AMANTADINE [Suspect]
     Indication: BALANCE DISORDER
     Route: 048
     Dates: start: 20120802, end: 20121227

REACTIONS (1)
  - Pruritus [None]
